FAERS Safety Report 13575461 (Version 4)
Quarter: 2018Q4

REPORT INFORMATION
  Report Type: Report from Study
  Country: GB (occurrence: GB)
  Receive Date: 20170524
  Receipt Date: 20181126
  Transmission Date: 20190204
  Serious: Yes (Other)
  Sender: FDA-Public Use
  Company Number: GB-BRISTOL-MYERS SQUIBB COMPANY-BMS-2016-012089

PATIENT
  Sex: Male

DRUGS (1)
  1. ABATACEPT [Suspect]
     Active Substance: ABATACEPT
     Indication: RHEUMATOID ARTHRITIS
     Dosage: 125 MG, QWK
     Route: 058
     Dates: start: 20141211

REACTIONS (10)
  - Depression [Unknown]
  - Malaise [Unknown]
  - Skin papilloma [Unknown]
  - Infection [Unknown]
  - Nephrolithiasis [Unknown]
  - Lower respiratory tract infection [Unknown]
  - Anxiety [Unknown]
  - Blood test abnormal [Unknown]
  - Multiple sclerosis [Unknown]
  - Pharyngitis [Unknown]
